FAERS Safety Report 8020510-8 (Version None)
Quarter: 2012Q1

REPORT INFORMATION
  Report Type: 
  Country: None (occurrence: None)
  Receive Date: 20120103
  Receipt Date: 20111227
  Transmission Date: 20120608
  Serious: Yes (Life-Threatening, Other)
  Sender: FDA-Public Use
  Company Number: JP-ROCHE-765894

PATIENT
  Sex: Male
  Weight: 60 kg

DRUGS (4)
  1. XELODA [Suspect]
     Indication: RECTAL CANCER METASTATIC
     Dosage: DOSAGE IS UNCERTAIN.
     Route: 048
     Dates: start: 20110216, end: 20110302
  2. WARFARIN SODIUM [Concomitant]
     Indication: ATRIAL FIBRILLATION
     Dosage: DOSAGE IS UNCERTAIN.
     Route: 048
  3. URINORM [Concomitant]
     Indication: HYPERURICAEMIA
     Route: 048
  4. PLETAL [Concomitant]
     Indication: ATRIAL FIBRILLATION
     Route: 048
     Dates: end: 20110307

REACTIONS (7)
  - ACUTE RESPIRATORY FAILURE [None]
  - DIARRHOEA [None]
  - RASH [None]
  - COAGULATION TIME PROLONGED [None]
  - HAEMOPTYSIS [None]
  - PULMONARY ALVEOLAR HAEMORRHAGE [None]
  - DRUG INTERACTION [None]
